FAERS Safety Report 4863744-3 (Version None)
Quarter: 2005Q4

REPORT INFORMATION
  Report Type: 
  Country: None (occurrence: None)
  Receive Date: 20051222
  Receipt Date: 20051130
  Transmission Date: 20060501
  Serious: No
  Sender: FDA-Public Use
  Company Number: US-GLAXOSMITHKLINE-A0584076A

PATIENT
  Sex: Female

DRUGS (2)
  1. FLOVENT [Suspect]
     Indication: ASTHMA
     Dosage: 1PUFF PER DAY
     Route: 055
     Dates: start: 20050927
  2. SINGULAIR [Concomitant]

REACTIONS (2)
  - OFF LABEL USE [None]
  - PHARMACEUTICAL PRODUCT COMPLAINT [None]
